FAERS Safety Report 8474847-9 (Version None)
Quarter: 2012Q2

REPORT INFORMATION
  Report Type: 
  Country: None (occurrence: None)
  Receive Date: 20120621
  Receipt Date: 20120605
  Transmission Date: 20120825
  Serious: Yes (Other)
  Sender: FDA-Public Use
  Company Number: ES-DEXPHARM-20120654

PATIENT
  Age: 83 Year
  Sex: Male

DRUGS (9)
  1. BISOPROLOL FUMARATE [Concomitant]
  2. ACENOCOUMAROL [Concomitant]
  3. OMEPRAZOLE [Suspect]
  4. MANIDIPINE [Concomitant]
  5. PREDNISONE [Concomitant]
  6. TORSEMIDE [Concomitant]
  7. CALCIUM AND VITAMIN D [Concomitant]
  8. LEVOTHYROXINE SODIUM [Concomitant]
  9. ALLOPURINOL [Concomitant]

REACTIONS (6)
  - MUSCULAR WEAKNESS [None]
  - HYPOMAGNESAEMIA [None]
  - DISORIENTATION [None]
  - HYPOCALCAEMIA [None]
  - VOMITING [None]
  - ASTHENIA [None]
